FAERS Safety Report 19706206 (Version 1)
Quarter: 2021Q3

REPORT INFORMATION
  Report Type: Report from Study
  Country: BR (occurrence: BR)
  Receive Date: 20210817
  Receipt Date: 20210817
  Transmission Date: 20211014
  Serious: Yes (Other)
  Sender: FDA-Public Use
  Company Number: NVSC2021BR184692

PATIENT

DRUGS (1)
  1. GILENYA [Suspect]
     Active Substance: FINGOLIMOD HYDROCHLORIDE
     Indication: PRODUCT USED FOR UNKNOWN INDICATION
     Dosage: STARTED 2 AND HALF YEARS AGO
     Route: 065

REACTIONS (4)
  - Glaucoma [Unknown]
  - Eye pain [Unknown]
  - Intraocular pressure test abnormal [Unknown]
  - Lacrimation increased [Unknown]

NARRATIVE: CASE EVENT DATE: 202105
